FAERS Safety Report 5421239-2 (Version None)
Quarter: 2007Q3

REPORT INFORMATION
  Report Type: 
  Country: None (occurrence: None)
  Receive Date: 20070821
  Receipt Date: 20070813
  Transmission Date: 20080115
  Serious: Yes (Hospitalization)
  Sender: FDA-Public Use
  Company Number: US-SANOFI-SYNTHELABO-A03200705079

PATIENT
  Age: 72 Year
  Sex: Male

DRUGS (7)
  1. ASPIRIN [Concomitant]
     Dosage: UNK
     Route: 065
  2. LIPITOR [Concomitant]
     Dosage: UNK
     Route: 065
  3. ATENOLOL [Concomitant]
     Dosage: UNK
     Route: 065
  4. LISINOPRIL [Concomitant]
     Dosage: UNK
     Route: 065
  5. NAPROSYN [Interacting]
     Indication: PAIN
     Route: 048
     Dates: start: 20061015
  6. NIASPAN [Suspect]
     Route: 048
     Dates: start: 20070301, end: 20070401
  7. PLAVIX [Interacting]
     Indication: CORONARY ARTERIAL STENT INSERTION
     Dosage: UNK
     Route: 048

REACTIONS (7)
  - BURNING SENSATION [None]
  - DRUG INTERACTION [None]
  - DYSPNOEA [None]
  - EYE INFECTION STAPHYLOCOCCAL [None]
  - RASH ERYTHEMATOUS [None]
  - SHOCK [None]
  - STAPHYLOCOCCAL INFECTION [None]
